FAERS Safety Report 7890021-9 (Version None)
Quarter: 2011Q4

REPORT INFORMATION
  Report Type: 
  Country: None (occurrence: None)
  Receive Date: 20111103
  Receipt Date: 20111027
  Transmission Date: 20120403
  Serious: Yes (Hospitalization)
  Sender: FDA-Public Use
  Company Number: PHHY2011BR95761

PATIENT
  Sex: Male
  Weight: 89 kg

DRUGS (2)
  1. DIOVAN HCT [Suspect]
     Indication: HYPERTENSION
     Dosage: 1 DF (80/12.5MG) DAILY
     Route: 048
  2. CIALIS [Concomitant]
     Dosage: UNK

REACTIONS (2)
  - URINARY INCONTINENCE [None]
  - ERECTILE DYSFUNCTION [None]
